FAERS Safety Report 9844788 (Version 1)
Quarter: 2014Q1

REPORT INFORMATION
  Report Type: Spontaneous
  Country: US (occurrence: None)
  Receive Date: 20140123
  Receipt Date: 20140123
  Transmission Date: 20141002
  Serious: Yes (Other)
  Sender: FDA-Public Use
  Company Number: None

PATIENT
  Age: 4 Year
  Sex: Female
  Weight: 18.6 kg

DRUGS (1)
  1. CEFDINIR [Suspect]
     Indication: PHARYNGITIS STREPTOCOCCAL
     Dosage: 1 TEASPOON ?ONCE DAILY?TAKEN BY MOUTH
     Route: 048
     Dates: start: 20140113, end: 20140115

REACTIONS (3)
  - Pyrexia [None]
  - Headache [None]
  - Drug ineffective [None]
